FAERS Safety Report 5004390-0 (Version None)
Quarter: 2006Q2

REPORT INFORMATION
  Report Type: 
  Country: None (occurrence: None)
  Receive Date: 20060517
  Receipt Date: 20060412
  Transmission Date: 20061013
  Serious: Yes (Other)
  Sender: FDA-Public Use
  Company Number: US-AMGEN-STX176081

PATIENT
  Sex: Male
  Weight: 83.1 kg

DRUGS (8)
  1. ENBREL [Suspect]
     Indication: RHEUMATOID ARTHRITIS
     Route: 058
     Dates: start: 20030429, end: 20051207
  2. ENBREL [Suspect]
     Indication: PSORIASIS
  3. ENBREL [Suspect]
     Indication: PSORIATIC ARTHROPATHY
  4. LIPITOR [Concomitant]
  5. LOTREL [Concomitant]
  6. PROTONIX [Concomitant]
  7. VITAMIN C AND E [Concomitant]
  8. MULTIVITAMIN [Concomitant]

REACTIONS (10)
  - ASTHENIA [None]
  - BLOOD IMMUNOGLOBULIN M INCREASED [None]
  - DYSARTHRIA [None]
  - FATIGUE [None]
  - GAIT DISTURBANCE [None]
  - MEMORY IMPAIRMENT [None]
  - MENTAL STATUS CHANGES [None]
  - MUSCULAR WEAKNESS [None]
  - PARAESTHESIA [None]
  - TREMOR [None]
